FAERS Safety Report 5168812-7 (Version None)
Quarter: 2006Q4

REPORT INFORMATION
  Report Type: 
  Country: None (occurrence: None)
  Receive Date: 20061211
  Receipt Date: 20061120
  Transmission Date: 20070319
  Serious: Yes (Hospitalization)
  Sender: FDA-Public Use
  Company Number: PHEH2006US14444

PATIENT
  Sex: Female

DRUGS (1)
  1. METHERGINE [Suspect]

REACTIONS (4)
  - BODY TEMPERATURE INCREASED [None]
  - COMPLICATION OF DELIVERY [None]
  - CYANOSIS [None]
  - DYSPNOEA [None]
